FAERS Safety Report 20781605 (Version 1)
Quarter: 2022Q2

REPORT INFORMATION
  Report Type: Spontaneous
  Country: FR (occurrence: FR)
  Receive Date: 20220504
  Receipt Date: 20220504
  Transmission Date: 20220720
  Serious: Yes (Life-Threatening, Hospitalization, Disabling)
  Sender: FDA-Public Use
  Company Number: None

PATIENT
  Age: 39 Year
  Sex: Male
  Weight: 78 kg

DRUGS (17)
  1. METHOTREXATE [Suspect]
     Active Substance: METHOTREXATE
     Indication: Behcet^s syndrome
     Route: 048
     Dates: start: 2017
  2. AZATHIOPRINE [Suspect]
     Active Substance: AZATHIOPRINE
     Indication: Behcet^s syndrome
     Route: 048
     Dates: start: 2004, end: 2008
  3. COLCHICINE [Suspect]
     Active Substance: COLCHICINE
     Indication: Behcet^s syndrome
     Dosage: STRENGTH:1MG, TABLET
     Route: 048
     Dates: start: 2004, end: 2008
  4. COLCHICINE [Suspect]
     Active Substance: COLCHICINE
     Indication: Behcet^s syndrome
     Dosage: FILM-COATED TABLETS
     Route: 048
     Dates: start: 2001, end: 2004
  5. CYCLOPHOSPHAMIDE [Suspect]
     Active Substance: CYCLOPHOSPHAMIDE
     Indication: Behcet^s syndrome
     Route: 042
     Dates: start: 2006, end: 2007
  6. HUMIRA [Suspect]
     Active Substance: ADALIMUMAB
     Indication: Behcet^s syndrome
     Dosage: STRENGTH:40 MG,  SOLUTION FOR INJECTION
     Route: 058
     Dates: start: 2015, end: 2017
  7. METHOTREXATE [Suspect]
     Active Substance: METHOTREXATE
     Indication: Behcet^s syndrome
     Route: 048
     Dates: start: 2003, end: 2004
  8. PREDNISONE [Suspect]
     Active Substance: PREDNISONE
     Indication: Behcet^s syndrome
     Route: 048
     Dates: start: 2000, end: 2003
  9. REMICADE [Suspect]
     Active Substance: INFLIXIMAB
     Indication: Behcet^s syndrome
     Route: 041
     Dates: start: 2010, end: 2012
  10. SOLU-MEDROL [Suspect]
     Active Substance: METHYLPREDNISOLONE SODIUM SUCCINATE
     Indication: Behcet^s syndrome
     Route: 042
     Dates: start: 2012, end: 2012
  11. BUSPIRONE [Concomitant]
     Active Substance: BUSPIRONE HYDROCHLORIDE
     Indication: Mixed anxiety and depressive disorder
     Route: 048
  12. OXAZEPAM [Concomitant]
     Active Substance: OXAZEPAM
     Indication: Mixed anxiety and depressive disorder
     Dosage: STRENGTH:10 MG, TABLET
     Route: 048
  13. SERTRALINE HYDROCHLORIDE [Concomitant]
     Active Substance: SERTRALINE HYDROCHLORIDE
     Indication: Mixed anxiety and depressive disorder
     Route: 048
  14. SOLIFENACIN [Concomitant]
     Active Substance: SOLIFENACIN
     Indication: Urinary incontinence
     Route: 048
  15. SULPIRIDE [Concomitant]
     Active Substance: SULPIRIDE
     Indication: Mixed anxiety and depressive disorder
     Route: 048
  16. FERROUS SULFATE [Concomitant]
     Active Substance: FERROUS SULFATE
     Indication: Iron deficiency anaemia
     Dosage: STRENGTH:80 MG, COATED TABLET
     Route: 048
     Dates: start: 20211020
  17. TOVIAZ [Concomitant]
     Active Substance: FESOTERODINE FUMARATE
     Indication: Urinary incontinence
     Dosage: STRENGTH:8 MG, PROLONGED-RELEASE TABLET
     Route: 048

REACTIONS (2)
  - Hodgkin^s disease [Not Recovered/Not Resolved]
  - Off label use [Unknown]

NARRATIVE: CASE EVENT DATE: 20211118
